FAERS Safety Report 6064105-4 (Version None)
Quarter: 2009Q1

REPORT INFORMATION
  Report Type: 
  Country: None (occurrence: None)
  Receive Date: 20090203
  Receipt Date: 20090203
  Transmission Date: 20090719
  Serious: Yes (Life-Threatening, Hospitalization)
  Sender: FDA-Public Use
  Company Number: None

PATIENT
  Sex: Female
  Weight: 89.3586 kg

DRUGS (2)
  1. FEMARA [Suspect]
     Indication: BREAST DISORDER
     Dosage: 2.5 MG PO QD
     Route: 048
  2. TARCEVA [Suspect]
     Indication: BREAST DISORDER
     Dosage: 100 MG PO QD
     Route: 048
     Dates: start: 20070529, end: 20081231

REACTIONS (4)
  - MALIGNANT NEOPLASM PROGRESSION [None]
  - MICROANGIOPATHIC HAEMOLYTIC ANAEMIA [None]
  - NO THERAPEUTIC RESPONSE [None]
  - THROMBOTIC THROMBOCYTOPENIC PURPURA [None]
